FAERS Safety Report 7007472-7 (Version None)
Quarter: 2010Q3

REPORT INFORMATION
  Report Type: 
  Country: None (occurrence: None)
  Receive Date: 20100922
  Receipt Date: 20100913
  Transmission Date: 20110219
  Serious: Yes (Other)
  Sender: FDA-Public Use
  Company Number: US-JNJFOC-20100903755

PATIENT
  Age: 16 Year
  Sex: Female

DRUGS (1)
  1. CONCERTA [Suspect]
     Indication: ATTENTION DEFICIT/HYPERACTIVITY DISORDER
     Route: 048

REACTIONS (6)
  - DRUG HYPERSENSITIVITY [None]
  - DRY MOUTH [None]
  - DYSPHAGIA [None]
  - LIP DISORDER [None]
  - MUSCLE TWITCHING [None]
  - URTICARIA [None]
